FAERS Safety Report 4707400-0 (Version None)
Quarter: 2005Q3

REPORT INFORMATION
  Report Type: 
  Country: None (occurrence: None)
  Receive Date: 20050706
  Receipt Date: 20050624
  Transmission Date: 20060218
  Serious: Yes (Hospitalization)
  Sender: FDA-Public Use
  Company Number: PHBS2005CH09129

PATIENT
  Age: 66 Year
  Sex: Female

DRUGS (3)
  1. ZOMETA [Suspect]
     Indication: BONE NEOPLASM MALIGNANT
     Dosage: 4 MG, QMO
     Route: 042
     Dates: start: 20040521, end: 20050527
  2. FEMARA [Concomitant]
     Dosage: 2.5 MG/D
     Route: 065
  3. DURAGESIC-100 [Concomitant]
     Indication: PAIN
     Route: 062

REACTIONS (5)
  - ASTHENIA [None]
  - BLOOD CREATINE PHOSPHOKINASE INCREASED [None]
  - BLOOD CREATININE INCREASED [None]
  - FATIGUE [None]
  - RENAL IMPAIRMENT [None]
